FAERS Safety Report 16902105 (Version 2)
Quarter: 2021Q2

REPORT INFORMATION
  Report Type: Spontaneous
  Country: CA (occurrence: CA)
  Receive Date: 20191010
  Receipt Date: 20210507
  Transmission Date: 20210716
  Serious: Yes (Other)
  Sender: FDA-Public Use
  Company Number: CA-ORION CORPORATION ORION PHARMA-TREX2019-4095

PATIENT
  Age: 79 Year
  Sex: Female

DRUGS (5)
  1. SIMPONI [Interacting]
     Active Substance: GOLIMUMAB
     Indication: RHEUMATOID ARTHRITIS
     Route: 065
  2. PLAQUENIL [Interacting]
     Active Substance: HYDROXYCHLOROQUINE SULFATE
     Indication: RHEUMATOID ARTHRITIS
     Route: 065
  3. METHOTREXATE (TRADE NAME UNKNOWN) [Suspect]
     Active Substance: METHOTREXATE
     Indication: RHEUMATOID ARTHRITIS
     Route: 065
  4. ARAVA [Interacting]
     Active Substance: LEFLUNOMIDE
     Indication: RHEUMATOID ARTHRITIS
     Route: 065
  5. HUMIRA [Interacting]
     Active Substance: ADALIMUMAB
     Indication: RHEUMATOID ARTHRITIS
     Dosage: 40MG/0.8ML
     Route: 058

REACTIONS (15)
  - Cervical vertebral fracture [Unknown]
  - Hypophagia [Unknown]
  - Influenza [Unknown]
  - Rheumatoid arthritis [Unknown]
  - Vomiting [Unknown]
  - Mobility decreased [Unknown]
  - Arthropathy [Unknown]
  - Malaise [Unknown]
  - Upper limb fracture [Unknown]
  - Drug interaction [Unknown]
  - Arthralgia [Not Recovered/Not Resolved]
  - Drug intolerance [Unknown]
  - Joint range of motion decreased [Unknown]
  - Nausea [Unknown]
  - Grip strength decreased [Unknown]

NARRATIVE: CASE EVENT DATE: 2017
